FAERS Safety Report 7651197-1 (Version None)
Quarter: 2011Q3

REPORT INFORMATION
  Report Type: 
  Country: None (occurrence: None)
  Receive Date: 20110802
  Receipt Date: 20110727
  Transmission Date: 20111222
  Serious: Yes (Other)
  Sender: FDA-Public Use
  Company Number: US-GILEAD-2011-0040850

PATIENT
  Sex: Female
  Weight: 73.094 kg

DRUGS (15)
  1. PRAVASTATIN [Suspect]
  2. SPIRIVA [Concomitant]
  3. OXYGEN [Concomitant]
  4. AMBIEN [Concomitant]
  5. XANAX [Concomitant]
  6. LETAIRIS [Suspect]
     Indication: PULMONARY HYPERTENSION
     Route: 048
     Dates: start: 20110212, end: 20110404
  7. HYDROCHLOROTHIAZIDE [Concomitant]
  8. FLUOXETINE [Concomitant]
  9. FERROUS SULFATE TAB [Concomitant]
  10. TYLENOL-500 [Suspect]
  11. PLAVIX [Concomitant]
  12. ADVAIR DISKUS 100/50 [Concomitant]
  13. TRIAMTERENE [Concomitant]
  14. LETAIRIS [Suspect]
     Indication: CHRONIC OBSTRUCTIVE PULMONARY DISEASE
  15. NAPROXEN (ALEVE) [Concomitant]

REACTIONS (3)
  - MUSCLE SPASMS [None]
  - CONTUSION [None]
  - LIVER FUNCTION TEST ABNORMAL [None]
